FAERS Safety Report 25955648 (Version 1)
Quarter: 2025Q4

REPORT INFORMATION
  Report Type: Spontaneous
  Country: US (occurrence: US)
  Receive Date: 20251024
  Receipt Date: 20251024
  Transmission Date: 20260117
  Serious: Yes (Life-Threatening, Other)
  Sender: Pyros Pharmaceuticals
  Company Number: US-PYROS PHARMACEUTICALS, INC-20251001324

PATIENT
  Age: 4 Month
  Sex: Male

DRUGS (4)
  1. VIGABATRIN [Suspect]
     Active Substance: VIGABATRIN
     Indication: Lissencephaly
     Dosage: 24 MG/KG/DAY, BID
     Route: 065
  2. VIGABATRIN [Suspect]
     Active Substance: VIGABATRIN
     Indication: Infantile spasms
     Dosage: 24 MG/KG/DAY, TID
     Route: 065
  3. VIGABATRIN [Suspect]
     Active Substance: VIGABATRIN
     Dosage: 36 MG/KG/DAY, TID
     Route: 065
  4. PREDNISOLONE [Concomitant]
     Active Substance: PREDNISOLONE
     Indication: Infantile spasms
     Dosage: UNK
     Route: 065

REACTIONS (5)
  - Hydrocephalus [Recovering/Resolving]
  - Tracheomalacia [Unknown]
  - Condition aggravated [Unknown]
  - Respiratory failure [Unknown]
  - Magnetic resonance imaging head abnormal [Unknown]
